FAERS Safety Report 6258957-2 (Version None)
Quarter: 2009Q3

REPORT INFORMATION
  Report Type: 
  Country: None (occurrence: None)
  Receive Date: 20090707
  Receipt Date: 20090622
  Transmission Date: 20100115
  Serious: Yes (Hospitalization)
  Sender: FDA-Public Use
  Company Number: FR-GENENTECH-285840

PATIENT
  Sex: Male

DRUGS (6)
  1. MABTHERA [Suspect]
     Indication: WALDENSTROM'S MACROGLOBULINAEMIA
     Dosage: UNK
     Route: 065
     Dates: start: 20090205, end: 20090409
  2. BACTRIM DS [Suspect]
     Indication: PROPHYLAXIS
     Dosage: 800 MG, 3/WEEK
     Route: 048
     Dates: start: 20090409
  3. ZELITREX [Suspect]
     Indication: PROPHYLAXIS
     Dosage: 500 MG, BID
     Route: 065
     Dates: start: 20090506
  4. ENDOXAN [Suspect]
     Indication: WALDENSTROM'S MACROGLOBULINAEMIA
     Dosage: UNK
     Route: 065
     Dates: start: 20090205, end: 20090307
  5. FLUDARABINE PHOSPHATE [Suspect]
     Indication: WALDENSTROM'S MACROGLOBULINAEMIA
     Dosage: UNK
     Route: 065
     Dates: start: 20090205, end: 20090307
  6. ALLOPURINOL [Suspect]
     Indication: DRUG USE FOR UNKNOWN INDICATION
     Dosage: 100 MG, UNK
     Route: 048
     Dates: start: 20090429

REACTIONS (2)
  - AGRANULOCYTOSIS [None]
  - NEUTROPENIA [None]
